FAERS Safety Report 12528832 (Version 2)
Quarter: 2016Q3

REPORT INFORMATION
  Report Type: Report from Study
  Country: US (occurrence: US)
  Receive Date: 20160705
  Receipt Date: 20160721
  Transmission Date: 20161109
  Serious: Yes (Other)
  Sender: FDA-Public Use
  Company Number: US-JNJFOC-20160616352

PATIENT
  Age: 67 Year
  Sex: Female

DRUGS (8)
  1. IMBRUVICA [Suspect]
     Active Substance: IBRUTINIB
     Indication: PLASMA CELL MYELOMA
     Route: 048
     Dates: start: 20140424, end: 20160714
  2. HYALURONIC ACID [Concomitant]
     Active Substance: HYALURONIC ACID
  3. IMBRUVICA [Suspect]
     Active Substance: IBRUTINIB
     Indication: MANTLE CELL LYMPHOMA
     Route: 048
     Dates: start: 20140424, end: 20160714
  4. IMBRUVICA [Suspect]
     Active Substance: IBRUTINIB
     Indication: CHRONIC LYMPHOCYTIC LEUKAEMIA
     Route: 048
     Dates: start: 20140424, end: 20160714
  5. VITAMIN D3 [Concomitant]
     Active Substance: CHOLECALCIFEROL
  6. BIOTIN [Concomitant]
     Active Substance: BIOTIN
  7. TURMERIC [Concomitant]
     Active Substance: TURMERIC
  8. ASTRAGALUS PROPINQUUS [Concomitant]

REACTIONS (13)
  - Product use issue [Not Recovered/Not Resolved]
  - Macular degeneration [Unknown]
  - Diarrhoea [Unknown]
  - Dacryostenosis acquired [Unknown]
  - Weight increased [Unknown]
  - Muscular weakness [Unknown]
  - Pain [Unknown]
  - Muscle spasms [Unknown]
  - Fatigue [Unknown]
  - Off label use [Not Recovered/Not Resolved]
  - Dry eye [Unknown]
  - Gait disturbance [Unknown]
  - Drug ineffective [Unknown]

NARRATIVE: CASE EVENT DATE: 20140424
